FAERS Safety Report 13233680 (Version 1)
Quarter: 2017Q1

REPORT INFORMATION
  Report Type: Spontaneous
  Country: US (occurrence: US)
  Receive Date: 20170214
  Receipt Date: 20170214
  Transmission Date: 20170428
  Serious: Yes (Death, Hospitalization)
  Sender: FDA-Public Use
  Company Number: None

PATIENT
  Sex: Male

DRUGS (1)
  1. LISINOPRIL 10 MG [Suspect]
     Active Substance: LISINOPRIL

REACTIONS (8)
  - Metabolic acidosis [None]
  - Myocardial infarction [None]
  - Acute kidney injury [None]
  - Multiple organ dysfunction syndrome [None]
  - Acute myocardial infarction [None]
  - Coronary artery disease [None]
  - Electrocardiogram ST segment elevation [None]
  - Cardiogenic shock [None]

NARRATIVE: CASE EVENT DATE: 20150404
